FAERS Safety Report 5960208-0 (Version None)
Quarter: 2008Q4

REPORT INFORMATION
  Report Type: 
  Country: None (occurrence: None)
  Receive Date: 20081110
  Receipt Date: 20080926
  Transmission Date: 20090506
  Serious: No
  Sender: FDA-Public Use
  Company Number: 2008US002351

PATIENT
  Age: 69 Year
  Sex: Male
  Weight: 95.2 kg

DRUGS (3)
  1. LEXISCAN [Suspect]
     Indication: SCAN MYOCARDIAL PERFUSION
     Dosage: 5 ML, TOTAL DOSE, IV NOS
     Route: 042
     Dates: start: 20080825, end: 20080825
  2. PREVACID [Concomitant]
  3. NORVASC [Concomitant]

REACTIONS (1)
  - DIARRHOEA [None]
